FAERS Safety Report 4554702-7 (Version None)
Quarter: 2005Q1

REPORT INFORMATION
  Report Type: 
  Country: None (occurrence: None)
  Receive Date: 20050118
  Receipt Date: 20020903
  Transmission Date: 20050727
  Serious: Yes (Disabling)
  Sender: FDA-Public Use
  Company Number: US-GLAXOSMITHKLINE-A0383810A

PATIENT
  Age: 30 Year
  Sex: Female

DRUGS (15)
  1. PAXIL [Suspect]
     Indication: OBSESSIVE-COMPULSIVE DISORDER
     Dosage: 20MG PER DAY
     Route: 048
     Dates: start: 19970901, end: 20010101
  2. ORTHO TRI-CYCLEN [Concomitant]
     Dosage: 1TAB PER DAY
     Route: 048
  3. NORDETTE-21 [Concomitant]
  4. LAMISIL [Concomitant]
     Indication: ONYCHOMYCOSIS
     Dosage: 259MG PER DAY
  5. NAPROSYN [Concomitant]
  6. ALBUTEROL [Concomitant]
  7. OPCON-A [Concomitant]
  8. CENTRUM [Concomitant]
  9. LEVORA 0.15/30-21 [Concomitant]
     Route: 048
  10. ERYTHROMYCIN [Concomitant]
     Route: 047
  11. ACETAMINOPHEN AND CODEINE PHOSPHATE [Concomitant]
  12. SILVER SULFADIAZINE [Concomitant]
     Route: 061
  13. BIAXIN [Concomitant]
  14. GUAIFED [Concomitant]
     Route: 048
  15. COTRIM [Concomitant]

REACTIONS (42)
  - ABNORMAL DREAMS [None]
  - AGITATION [None]
  - ANXIETY [None]
  - ASTHENIA [None]
  - BEDRIDDEN [None]
  - CONFUSIONAL STATE [None]
  - CRYING [None]
  - DIARRHOEA [None]
  - DISABILITY [None]
  - DIZZINESS [None]
  - DRUG INEFFECTIVE [None]
  - DRUG WITHDRAWAL SYNDROME [None]
  - DYSGEUSIA [None]
  - DYSPEPSIA [None]
  - DYSSTASIA [None]
  - EATING DISORDER [None]
  - EMOTIONAL DISORDER [None]
  - FATIGUE [None]
  - HEADACHE [None]
  - HYPERHIDROSIS [None]
  - INFLUENZA [None]
  - INSOMNIA [None]
  - IRRITABILITY [None]
  - IRRITABLE BOWEL SYNDROME [None]
  - LIBIDO DECREASED [None]
  - MALAISE [None]
  - MUSCLE SPASMS [None]
  - NAUSEA [None]
  - PALPITATIONS [None]
  - PARAESTHESIA [None]
  - PARANOIA [None]
  - PHARYNGITIS STREPTOCOCCAL [None]
  - SENSORY DISTURBANCE [None]
  - SINUSITIS [None]
  - SLEEP DISORDER [None]
  - STOMACH DISCOMFORT [None]
  - SUICIDAL IDEATION [None]
  - TREATMENT NONCOMPLIANCE [None]
  - TREMOR [None]
  - ULCER [None]
  - VERTIGO [None]
  - WEIGHT DECREASED [None]
